FAERS Safety Report 5945561-6 (Version None)
Quarter: 2008Q4

REPORT INFORMATION
  Report Type: 
  Country: None (occurrence: None)
  Receive Date: 20081107
  Receipt Date: 20081030
  Transmission Date: 20090506
  Serious: Yes (Hospitalization, Other)
  Sender: FDA-Public Use
  Company Number: DE-ROXANE LABORATORIES, INC.-2008-RO-00186RO

PATIENT
  Age: 45 Year
  Sex: Male
  Weight: 83 kg

DRUGS (8)
  1. AZATHIOPRINE [Suspect]
     Indication: CROHN'S DISEASE
     Dosage: 150MG
  2. SALAZINES [Suspect]
     Indication: CROHN'S DISEASE
  3. BUDESONIDE [Suspect]
     Indication: CROHN'S DISEASE
     Route: 048
  4. BUDESONIDE [Suspect]
     Route: 061
  5. HISTOACRYL [Concomitant]
     Indication: SCLEROTHERAPY
  6. HISTOACRYL [Concomitant]
     Indication: GASTRIC VARICES
  7. PROPRANOLOL [Concomitant]
     Indication: PORTAL HYPERTENSION
  8. BUDESONIDE [Concomitant]
     Dosage: 9MG

REACTIONS (6)
  - GASTRIC VARICES [None]
  - HEPATITIS [None]
  - NODULAR REGENERATIVE HYPERPLASIA [None]
  - PORTAL HYPERTENSION [None]
  - SPLENOMEGALY [None]
  - VARICES OESOPHAGEAL [None]
